FAERS Safety Report 8110918-4 (Version None)
Quarter: 2012Q1

REPORT INFORMATION
  Report Type: 
  Country: None (occurrence: None)
  Receive Date: 20120203
  Receipt Date: 20120127
  Transmission Date: 20120608
  Serious: Yes (Other)
  Sender: FDA-Public Use
  Company Number: AT-AMGEN-AUTSP2011062938

PATIENT
  Age: 55 Year
  Sex: Female

DRUGS (3)
  1. XELODA [Concomitant]
  2. VECTIBIX [Suspect]
     Indication: COLON CANCER METASTATIC
     Dosage: 500 MG, UNK
     Dates: start: 20100204
  3. VECTIBIX [Suspect]
     Dosage: 400 MG, UNK
     Dates: start: 20100304

REACTIONS (2)
  - ACNE [None]
  - BLISTER [None]
